FAERS Safety Report 8402727-3 (Version None)
Quarter: 2012Q2

REPORT INFORMATION
  Report Type: 
  Country: None (occurrence: None)
  Receive Date: 20120601
  Receipt Date: 20120522
  Transmission Date: 20120825
  Serious: Yes (Hospitalization)
  Sender: FDA-Public Use
  Company Number: JP-NOVOPROD-350523

PATIENT
  Age: 83 Year
  Sex: Female
  Weight: 50 kg

DRUGS (5)
  1. VICTOZA [Suspect]
     Indication: TYPE 2 DIABETES MELLITUS
     Dosage: 0.3-0.9 MG, QD
     Route: 058
     Dates: start: 20100914
  2. FLENIED [Concomitant]
     Indication: TRANSIENT ISCHAEMIC ATTACK
     Dosage: 200 MG, QD
     Route: 048
     Dates: start: 20100406
  3. MICARDIS [Concomitant]
     Dosage: 40 MG, QD
     Route: 048
     Dates: start: 20110113
  4. BEZATATE SR FUSO [Concomitant]
     Indication: HYPERLIPIDAEMIA
     Dosage: 200 MG, QD
     Route: 048
     Dates: start: 20101213
  5. ISOSORBIDE DINITRATE [Concomitant]
     Indication: ANGINA PECTORIS
     Dosage: 40 MG, TID
     Dates: start: 20110113

REACTIONS (3)
  - PNEUMATOSIS INTESTINALIS [None]
  - ILEUS PARALYTIC [None]
  - HYPOGLYCAEMIA [None]
